FAERS Safety Report 24558221 (Version 2)
Quarter: 2024Q4

REPORT INFORMATION
  Report Type: Report from Study
  Country: US (occurrence: US)
  Receive Date: 20241028
  Receipt Date: 20241106
  Transmission Date: 20250115
  Serious: Yes (Hospitalization)
  Sender: ABBVIE
  Company Number: US-ABBVIE-5974837

PATIENT
  Age: 83 Year
  Sex: Female

DRUGS (1)
  1. CREON [Suspect]
     Active Substance: PANCRELIPASE AMYLASE\PANCRELIPASE LIPASE\PANCRELIPASE PROTEASE
     Indication: Product used for unknown indication
     Dosage: CREON 36000
     Route: 048

REACTIONS (3)
  - Fall [Recovering/Resolving]
  - Diarrhoea [Not Recovered/Not Resolved]
  - Pelvic fracture [Unknown]

NARRATIVE: CASE EVENT DATE: 20240924
